FAERS Safety Report 21031970 (Version 7)
Quarter: 2023Q2

REPORT INFORMATION
  Report Type: Spontaneous
  Country: US (occurrence: US)
  Receive Date: 20220701
  Receipt Date: 20230606
  Transmission Date: 20230722
  Serious: Yes (Hospitalization, Other)
  Sender: FDA-Public Use
  Company Number: US-NOVARTISPH-NVSC2022US148889

PATIENT
  Age: 41 Day
  Sex: Female
  Weight: 3.628 kg

DRUGS (3)
  1. ZOLGENSMA [Suspect]
     Active Substance: ONASEMNOGENE ABEPARVOVEC-XIOI
     Indication: Spinal muscular atrophy
     Dosage: 3.85 X 10E14 VG/KG OVER 60 MINUTES, ONCE/SINGLE
     Route: 042
     Dates: start: 20221005, end: 20221005
  2. PREDNISOLONE [Concomitant]
     Active Substance: PREDNISOLONE
     Indication: Product used for unknown indication
     Dosage: 1 MG/KG, QD (24 HOURS PRIOR TO INFUSION)
     Route: 042
  3. FAMOTIDINE [Concomitant]
     Active Substance: FAMOTIDINE
     Indication: Product used for unknown indication
     Dosage: UNK (24 HOURS PRIOR TO INFUSION)
     Route: 042

REACTIONS (1)
  - Necrotising enterocolitis neonatal [Unknown]

NARRATIVE: CASE EVENT DATE: 20221025
